FAERS Safety Report 5640924-0 (Version None)
Quarter: 2008Q1

REPORT INFORMATION
  Report Type: 
  Country: None (occurrence: None)
  Receive Date: 20080227
  Receipt Date: 20080215
  Transmission Date: 20080703
  Serious: Yes (Hospitalization)
  Sender: FDA-Public Use
  Company Number: AT-ROCHE-543260

PATIENT
  Age: 76 Year
  Sex: Female

DRUGS (6)
  1. XELODA [Suspect]
     Dosage: TOTAL DOSE: 4100 MG
     Route: 048
     Dates: start: 20070726, end: 20070928
  2. DIOVAN HCT [Concomitant]
  3. NEXIUM [Concomitant]
  4. ACE INHIBITOR [Concomitant]
  5. 1 CONCOMITANT DRUG [Concomitant]
     Dosage: DRUG: BETA INHIBITOR
  6. 1 CONCOMITANT DRUG [Concomitant]
     Dosage: DRUG: AT 2 INHIBITOR

REACTIONS (2)
  - PANCREATITIS NECROTISING [None]
  - WEIGHT DECREASED [None]
